FAERS Safety Report 25234124 (Version 2)
Quarter: 2025Q2

REPORT INFORMATION
  Report Type: Report from Study
  Country: DE (occurrence: DE)
  Receive Date: 20250424
  Receipt Date: 20250501
  Transmission Date: 20250716
  Serious: Yes (Hospitalization)
  Sender: ALEXION PHARMACEUTICALS
  Company Number: DE-002147023-NVSC2020DE141837

PATIENT
  Weight: 81 kg

DRUGS (7)
  1. FULVESTRANT [Suspect]
     Active Substance: FULVESTRANT
     Indication: Breast cancer metastatic
  2. FULVESTRANT [Suspect]
     Active Substance: FULVESTRANT
  3. RIBOCICLIB [Suspect]
     Active Substance: RIBOCICLIB
     Indication: Breast cancer metastatic
     Dosage: 600 MG, QD (SCHEMA 21 DAYS INTAKE, 7 DAYS PAUSE)
  4. RIBOCICLIB [Suspect]
     Active Substance: RIBOCICLIB
  5. RIBOCICLIB [Suspect]
     Active Substance: RIBOCICLIB
  6. RIBOCICLIB [Suspect]
     Active Substance: RIBOCICLIB
  7. RIBOCICLIB [Suspect]
     Active Substance: RIBOCICLIB

REACTIONS (6)
  - Diarrhoea infectious [Recovered/Resolved]
  - Gastritis [Recovering/Resolving]
  - Abdominal discomfort [Not Recovered/Not Resolved]
  - Fatigue [Recovered/Resolved]
  - Decreased appetite [Not Recovered/Not Resolved]
  - Off label use [Unknown]
